FAERS Safety Report 5309757-9 (Version None)
Quarter: 2007Q2

REPORT INFORMATION
  Report Type: 
  Country: None (occurrence: None)
  Receive Date: 20070427
  Receipt Date: 20061115
  Transmission Date: 20071010
  Serious: No
  Sender: FDA-Public Use
  Company Number: US-GLAXOSMITHKLINE-A0627654A

PATIENT
  Age: 56 Year
  Sex: Female

DRUGS (5)
  1. ZOFRAN [Suspect]
     Indication: GASTROENTERITIS
     Dosage: 4MG AS REQUIRED
     Route: 048
     Dates: start: 20061114, end: 20061115
  2. TOPAMAX [Concomitant]
  3. ATENOLOL [Concomitant]
  4. ZOLOFT [Concomitant]
  5. FLAGYL [Concomitant]

REACTIONS (2)
  - DRUG INEFFECTIVE [None]
  - PHARMACEUTICAL PRODUCT COMPLAINT [None]
